FAERS Safety Report 21594371 (Version 1)
Quarter: 2022Q4

REPORT INFORMATION
  Report Type: Spontaneous
  Country: US (occurrence: None)
  Receive Date: 20221115
  Receipt Date: 20221115
  Transmission Date: 20230113
  Serious: No
  Sender: FDA-Public Use
  Company Number: US-ROCHE-3176045

PATIENT
  Sex: Female

DRUGS (2)
  1. VABYSMO [Suspect]
     Active Substance: FARICIMAB-SVOA
     Indication: Neovascular age-related macular degeneration
     Route: 065
  2. LUCENTIS [Suspect]
     Active Substance: RANIBIZUMAB
     Indication: Neovascular age-related macular degeneration
     Route: 065

REACTIONS (6)
  - Headache [Unknown]
  - Arthralgia [Unknown]
  - Dizziness [Unknown]
  - Eye irritation [Unknown]
  - Ocular discomfort [Unknown]
  - Metamorphopsia [Unknown]
